FAERS Safety Report 8840419 (Version 6)
Quarter: 2014Q2

REPORT INFORMATION
  Report Type: Spontaneous
  Country: US (occurrence: US)
  Receive Date: 20121015
  Receipt Date: 20140627
  Transmission Date: 20141212
  Serious: Yes (Hospitalization, Disabling, Other)
  Sender: FDA-Public Use
  Company Number: US-009507513-1210USA003154

PATIENT
  Sex: Female
  Weight: 70.75 kg

DRUGS (1)
  1. FOSAMAX [Suspect]
     Indication: OSTEOPOROSIS
     Dosage: 70 MG, QW
     Route: 048
     Dates: start: 200105, end: 200604

REACTIONS (35)
  - Bone graft [Unknown]
  - Intramedullary rod insertion [Unknown]
  - Squamous cell carcinoma [Unknown]
  - Fracture nonunion [Recovered/Resolved]
  - Internal fixation of fracture [Unknown]
  - Medical device removal [Unknown]
  - Fracture pain [Recovered/Resolved]
  - Bone graft [Unknown]
  - Bone graft [Unknown]
  - Device breakage [Unknown]
  - Bronchitis [Unknown]
  - Intramedullary rod insertion [Unknown]
  - Femur fracture [Unknown]
  - Femur fracture [Not Recovered/Not Resolved]
  - Depression [Not Recovered/Not Resolved]
  - Periodontal operation [Unknown]
  - Fall [Unknown]
  - Chronic obstructive pulmonary disease [Unknown]
  - Asthma [Unknown]
  - Dental prosthesis placement [Unknown]
  - Facial bones fracture [Unknown]
  - Tooth extraction [Unknown]
  - Kyphosis [Unknown]
  - Heart rate [Unknown]
  - Hypotension [Unknown]
  - Atrial fibrillation [Unknown]
  - Anaemia [Unknown]
  - Hypertension [Unknown]
  - Hyperlipidaemia [Unknown]
  - Osteoarthritis [Unknown]
  - Shoulder operation [Unknown]
  - Atrial fibrillation [Unknown]
  - Bronchitis chronic [Not Recovered/Not Resolved]
  - Atrial fibrillation [Unknown]
  - Mobility decreased [Not Recovered/Not Resolved]
